FAERS Safety Report 15897936 (Version 1)
Quarter: 2019Q1

REPORT INFORMATION
  Report Type: Spontaneous
  Country: US (occurrence: US)
  Receive Date: 20190201
  Receipt Date: 20190201
  Transmission Date: 20190417
  Serious: No
  Sender: FDA-Public Use
  Company Number: US-TEVA-2019-US-999573

PATIENT
  Sex: Female

DRUGS (6)
  1. LEVOTHYROXINE. [Concomitant]
     Active Substance: LEVOTHYROXINE
  2. RISPERDAL [Concomitant]
     Active Substance: RISPERIDONE
  3. PROPRANOLOL [Suspect]
     Active Substance: PROPRANOLOL HYDROCHLORIDE
     Indication: TREMOR
     Route: 065
  4. PRAVASTATIN. [Concomitant]
     Active Substance: PRAVASTATIN
  5. MELOXICAM. [Concomitant]
     Active Substance: MELOXICAM
  6. BENZATROPINE [Concomitant]
     Active Substance: BENZTROPINE

REACTIONS (1)
  - Drug ineffective [Unknown]
